FAERS Safety Report 8825455 (Version 2)
Quarter: 2014Q3

REPORT INFORMATION
  Report Type: Report from Study
  Country: US (occurrence: US)
  Receive Date: 20121004
  Receipt Date: 20140910
  Transmission Date: 20150326
  Serious: Yes (Hospitalization)
  Sender: FDA-Public Use
  Company Number: US-ROCHE-1132406

PATIENT
  Age: 61 Year
  Sex: Female

DRUGS (13)
  1. ZYPREXA [Concomitant]
     Active Substance: OLANZAPINE
     Route: 065
  2. MEDROL [Concomitant]
     Active Substance: METHYLPREDNISOLONE
     Route: 065
  3. LEVOXYL [Concomitant]
     Active Substance: LEVOTHYROXINE SODIUM
     Dosage: 175 MICROGRAM
     Route: 065
  4. RITUXAN [Suspect]
     Active Substance: RITUXIMAB
     Dosage: VERY SLOWLY 4 HOUR TOTAL
     Route: 042
     Dates: start: 20011102
  5. RITUXAN [Suspect]
     Active Substance: RITUXIMAB
     Indication: THROMBOCYTOPENIA
     Route: 042
     Dates: start: 20011102, end: 20011102
  6. INSULIN [Concomitant]
     Active Substance: INSULIN NOS
  7. PREVACID [Concomitant]
     Active Substance: LANSOPRAZOLE
  8. BENADRYL [Concomitant]
     Active Substance: DIPHENHYDRAMINE HYDROCHLORIDE
     Route: 042
     Dates: start: 20011112
  9. DARVOCET [Concomitant]
     Active Substance: ACETAMINOPHEN\PROPOXYPHENE HYDROCHLORIDE
     Route: 065
  10. TYLENOL [Concomitant]
     Active Substance: ACETAMINOPHEN
     Route: 065
     Dates: start: 20011112
  11. PANCREASE (UNITED STATES) [Concomitant]
     Route: 065
  12. RITUXAN [Suspect]
     Active Substance: RITUXIMAB
     Route: 042
     Dates: start: 20011112
  13. RITUXAN [Suspect]
     Active Substance: RITUXIMAB
     Route: 042

REACTIONS (5)
  - Dyspnoea [Unknown]
  - Malaise [Unknown]
  - Cardiac failure [Unknown]
  - Contusion [Unknown]
  - Constipation [Unknown]

NARRATIVE: CASE EVENT DATE: 20011102
